FAERS Safety Report 9742536 (Version 1)
Quarter: 2013Q4

REPORT INFORMATION
  Report Type: Report from Study
  Country: BR (occurrence: BR)
  Receive Date: 20131210
  Receipt Date: 20131210
  Transmission Date: 20140711
  Serious: Yes (Hospitalization)
  Sender: FDA-Public Use
  Company Number: PHHY2013BR144189

PATIENT
  Sex: Male
  Weight: 76 kg

DRUGS (2)
  1. LEPONEX [Suspect]
     Dosage: 400 MG, DAILY
     Route: 048
  2. LEPONEX [Suspect]
     Dosage: 25 MG, UNK

REACTIONS (2)
  - Psychotic disorder [Recovered/Resolved]
  - Abnormal behaviour [Unknown]
